FAERS Safety Report 9820424 (Version 3)
Quarter: 2014Q1

REPORT INFORMATION
  Report Type: Spontaneous
  Country: BR (occurrence: BR)
  Receive Date: 20140116
  Receipt Date: 20140320
  Transmission Date: 20141002
  Serious: Yes (Disabling)
  Sender: FDA-Public Use
  Company Number: BR-ASTRAZENECA-2014SE01186

PATIENT
  Age: 741 Month
  Sex: Male
  Weight: 90 kg

DRUGS (4)
  1. ZOLADEX [Suspect]
     Indication: PROSTATE CANCER
     Route: 058
     Dates: start: 201304, end: 201310
  2. ZOLADEX [Suspect]
     Indication: PROSTATE CANCER
     Route: 058
     Dates: start: 20131123, end: 2013
  3. ZOLADEX [Suspect]
     Indication: PROSTATE CANCER
     Route: 058
     Dates: start: 20140223
  4. OMNIC [Concomitant]
     Indication: URINARY TRACT DISORDER
     Dosage: BID
     Route: 048
     Dates: start: 201304, end: 201401

REACTIONS (9)
  - Balance disorder [Recovered/Resolved]
  - Vomiting [Recovered/Resolved]
  - Pyrexia [Recovered/Resolved]
  - Breast disorder [Not Recovered/Not Resolved]
  - Pain in extremity [Recovered/Resolved]
  - Hypoacusis [Not Recovered/Not Resolved]
  - Hot flush [Recovered/Resolved]
  - Rash [Recovered/Resolved]
  - Alopecia [Recovered/Resolved]
